FAERS Safety Report 4611661-6 (Version None)
Quarter: 2005Q1

REPORT INFORMATION
  Report Type: 
  Country: None (occurrence: None)
  Receive Date: 20050317
  Receipt Date: 20050307
  Transmission Date: 20050727
  Serious: Yes (Other)
  Sender: FDA-Public Use
  Company Number: JP-ROCHE-398266

PATIENT
  Age: 6 Year
  Sex: Female

DRUGS (3)
  1. TAMIFLU [Suspect]
     Indication: INFLUENZA
     Route: 048
     Dates: start: 20050301, end: 20050303
  2. ZITHROMAC [Concomitant]
     Indication: DRUG USE FOR UNKNOWN INDICATION
     Route: 065
     Dates: start: 20050304, end: 20050304
  3. ALEVIATIN [Concomitant]
     Indication: EPILEPSY
     Dates: start: 20050221

REACTIONS (1)
  - STEVENS-JOHNSON SYNDROME [None]
